FAERS Safety Report 21157189 (Version 2)
Quarter: 2022Q3

REPORT INFORMATION
  Report Type: Spontaneous
  Country: NL (occurrence: NL)
  Receive Date: 20220801
  Receipt Date: 20220909
  Transmission Date: 20221026
  Serious: Yes (Death, Hospitalization, Other)
  Sender: FDA-Public Use
  Company Number: NL-BIOGEN-2022BI01143748

PATIENT
  Age: 50 Year
  Sex: Male

DRUGS (1)
  1. TECFIDERA [Suspect]
     Active Substance: DIMETHYL FUMARATE
     Indication: Multiple sclerosis
     Dosage: MAINTENANCE DOSE
     Route: 050
     Dates: start: 20210616, end: 20220704

REACTIONS (7)
  - Death [Fatal]
  - Terminal state [Not Recovered/Not Resolved]
  - Pulmonary embolism [Unknown]
  - Lung cancer metastatic [Unknown]
  - Metastases to adrenals [Unknown]
  - Metastases to abdominal wall [Unknown]
  - Liver disorder [Unknown]

NARRATIVE: CASE EVENT DATE: 20220704
